FAERS Safety Report 14934116 (Version 1)
Quarter: 2018Q2

REPORT INFORMATION
  Report Type: Spontaneous
  Country: FR (occurrence: FR)
  Receive Date: 20180524
  Receipt Date: 20180524
  Transmission Date: 20180711
  Serious: Yes (Hospitalization)
  Sender: FDA-Public Use
  Company Number: FR-JNJFOC-20180529313

PATIENT
  Sex: Male

DRUGS (6)
  1. ACUPAN [Concomitant]
     Active Substance: NEFOPAM HYDROCHLORIDE
     Route: 065
  2. DUROGESIC [Suspect]
     Active Substance: FENTANYL
     Indication: PAIN
     Route: 062
     Dates: start: 2018, end: 20180512
  3. DEBRIDAT [Concomitant]
     Active Substance: TRIMEBUTINE MALEATE
     Route: 065
  4. DUROGESIC [Suspect]
     Active Substance: FENTANYL
     Indication: PAIN
     Route: 062
     Dates: start: 20180513
  5. ACTISKENAN [Concomitant]
     Active Substance: MORPHINE SULFATE
     Route: 065
  6. PARACETAMOL [Concomitant]
     Active Substance: ACETAMINOPHEN
     Route: 065

REACTIONS (6)
  - Tooth discolouration [Unknown]
  - Hallucination [Unknown]
  - Altered state of consciousness [Unknown]
  - Urinary tract infection [Unknown]
  - Dry mouth [Unknown]
  - Hyperhidrosis [Unknown]

NARRATIVE: CASE EVENT DATE: 2018
